FAERS Safety Report 11847068 (Version 3)
Quarter: 2016Q3

REPORT INFORMATION
  Report Type: Report from Study
  Country: US (occurrence: US)
  Receive Date: 20151217
  Receipt Date: 20160711
  Transmission Date: 20161109
  Serious: Yes (Hospitalization, Other)
  Sender: FDA-Public Use
  Company Number: US-JNJFOC-20151205758

PATIENT
  Age: 74 Year
  Sex: Male
  Weight: 107 kg

DRUGS (8)
  1. ATORVASTATIN [Concomitant]
     Active Substance: ATORVASTATIN
  2. AMIODARONE [Concomitant]
     Active Substance: AMIODARONE
  3. DOXYCYCLINE. [Concomitant]
     Active Substance: DOXYCYCLINE
  4. IMBRUVICA [Suspect]
     Active Substance: IBRUTINIB
     Indication: WALDENSTROM^S MACROGLOBULINAEMIA
     Route: 048
     Dates: start: 20150514, end: 201604
  5. PROTONIX [Concomitant]
     Active Substance: PANTOPRAZOLE SODIUM
  6. IMBRUVICA [Suspect]
     Active Substance: IBRUTINIB
     Indication: WALDENSTROM^S MACROGLOBULINAEMIA
     Route: 048
     Dates: start: 201604
  7. ZOCOR [Concomitant]
     Active Substance: SIMVASTATIN
  8. ASA [Concomitant]
     Active Substance: ASPIRIN

REACTIONS (9)
  - Tongue ulceration [Unknown]
  - Rash [Unknown]
  - Bronchitis [Recovering/Resolving]
  - Dehydration [Unknown]
  - Dry skin [Not Recovered/Not Resolved]
  - Presyncope [Recovered/Resolved]
  - Skin lesion [Not Recovered/Not Resolved]
  - Pruritus [Not Recovered/Not Resolved]
  - Hypertension [Recovered/Resolved]

NARRATIVE: CASE EVENT DATE: 2015
